FAERS Safety Report 25427657 (Version 1)
Quarter: 2025Q2

REPORT INFORMATION
  Report Type: Spontaneous
  Country: US (occurrence: US)
  Receive Date: 20250612
  Receipt Date: 20250612
  Transmission Date: 20250716
  Serious: Yes (Death, Other)
  Sender: TOLMAR
  Company Number: US-Tolmar-TLM-2025-03029

PATIENT
  Age: 68 Year
  Sex: Male

DRUGS (2)
  1. ELIGARD [Suspect]
     Active Substance: LEUPROLIDE ACETATE
     Indication: Neoplasm prostate
     Route: 058
  2. DEVICE [Suspect]
     Active Substance: DEVICE
     Indication: Neoplasm prostate
     Route: 058

REACTIONS (1)
  - Death [Fatal]
